FAERS Safety Report 14597726 (Version 1)
Quarter: 2018Q1

REPORT INFORMATION
  Report Type: Spontaneous
  Country: US (occurrence: US)
  Receive Date: 20180302
  Receipt Date: 20180302
  Transmission Date: 20180509
  Serious: Yes (Death)
  Sender: FDA-Public Use
  Company Number: None

PATIENT
  Age: 91 Year
  Sex: Female

DRUGS (14)
  1. MULTI-VITAMIN [Concomitant]
     Active Substance: .ALPHA.-TOCOPHEROL ACETATE, DL-\ASCORBIC ACID\CYANOCOBALAMIN\FLUORIDE ION\FOLIC ACID\NIACIN\PYRIDOXINE\RIBOFLAVIN\THIAMINE\VITAMIN A\VITAMIN D
  2. VITAMIN B12 [Concomitant]
     Active Substance: CYANOCOBALAMIN
  3. METOPROLOL. [Concomitant]
     Active Substance: METOPROLOL
  4. PROCRIT [Suspect]
     Active Substance: ERYTHROPOIETIN
     Indication: ANAEMIA
     Route: 058
     Dates: start: 20170427, end: 20180223
  5. AMLODIPINE [Concomitant]
     Active Substance: AMLODIPINE BESYLATE
  6. DONEPEZIL. [Concomitant]
     Active Substance: DONEPEZIL
  7. IRON [Concomitant]
     Active Substance: IRON
  8. FAMOTIDINE. [Concomitant]
     Active Substance: FAMOTIDINE
  9. LEVOTHYROXIN [Concomitant]
     Active Substance: LEVOTHYROXINE
  10. NEPHRO-VITS [Concomitant]
  11. TYLENOL [Concomitant]
     Active Substance: ACETAMINOPHEN
  12. VITAMIN D [Concomitant]
     Active Substance: CHOLECALCIFEROL
  13. SIMVASTATIN. [Concomitant]
     Active Substance: SIMVASTATIN
  14. BIOTIN [Concomitant]
     Active Substance: BIOTIN

REACTIONS (1)
  - Death [None]

NARRATIVE: CASE EVENT DATE: 20180223
